FAERS Safety Report 4357976-0 (Version None)
Quarter: 2004Q2

REPORT INFORMATION
  Report Type: 
  Country: None (occurrence: None)
  Receive Date: 20040510
  Receipt Date: 20040505
  Transmission Date: 20050107
  Serious: Yes (Hospitalization)
  Sender: FDA-Public Use
  Company Number: 200411574GDS

PATIENT
  Age: 74 Year
  Sex: Male

DRUGS (7)
  1. CITALOPRAM [Suspect]
     Indication: DEPRESSION
  2. ASPIRIN [Suspect]
  3. IRINOTECAN [Suspect]
  4. VASOTEC [Concomitant]
  5. XANAX [Concomitant]
  6. ZOCOR [Concomitant]
  7. NITROSTAT [Concomitant]

REACTIONS (14)
  - ADENOCARCINOMA [None]
  - ASTHENIA [None]
  - BIFASCICULAR BLOCK [None]
  - BLOOD POTASSIUM INCREASED [None]
  - DEPRESSION [None]
  - DRUG INTERACTION [None]
  - DYSSTASIA [None]
  - GASTROINTESTINAL DISORDER [None]
  - LUNG NEOPLASM [None]
  - LYMPHADENOPATHY [None]
  - METASTASES TO BONE [None]
  - PAIN [None]
  - RHABDOMYOLYSIS [None]
  - TEARFULNESS [None]
